FAERS Safety Report 7816273-9 (Version None)
Quarter: 2011Q4

REPORT INFORMATION
  Report Type: 
  Country: None (occurrence: None)
  Receive Date: 20111016
  Receipt Date: 20111013
  Transmission Date: 20120403
  Serious: Yes (Hospitalization)
  Sender: FDA-Public Use
  Company Number: US-BRISTOL-MYERS SQUIBB COMPANY-14863674

PATIENT
  Age: 49 Year
  Sex: Male
  Weight: 76 kg

DRUGS (1)
  1. CISPLATIN [Suspect]
     Indication: PHARYNGEAL CANCER STAGE UNSPECIFIED
     Dosage: CISPLATIN 100MG/M2
     Dates: start: 20090120, end: 20090210

REACTIONS (4)
  - ORAL PAIN [None]
  - OROPHARYNGEAL PAIN [None]
  - CANDIDIASIS [None]
  - DRY MOUTH [None]
